FAERS Safety Report 10474820 (Version 3)
Quarter: 2014Q4

REPORT INFORMATION
  Report Type: Report from Study
  Country: US (occurrence: US)
  Receive Date: 20140925
  Receipt Date: 20141223
  Transmission Date: 20150528
  Serious: No
  Sender: FDA-Public Use
  Company Number: US-AMGEN-USASP2014072346

PATIENT
  Age: 60 Year
  Sex: Female
  Weight: 100.68 kg

DRUGS (6)
  1. ENBREL [Suspect]
     Active Substance: ETANERCEPT
     Indication: PSORIASIS
     Dosage: UNK
     Route: 065
  2. METHOTREXATE [Concomitant]
     Active Substance: METHOTREXATE
     Dosage: UNK
  3. FOLIC ACID. [Concomitant]
     Active Substance: FOLIC ACID
     Dosage: UNK
  4. OTEZLA [Concomitant]
     Active Substance: APREMILAST
     Dosage: UNK
  5. ENBREL [Suspect]
     Active Substance: ETANERCEPT
     Indication: PSORIATIC ARTHROPATHY
     Dosage: 50 MG, QWK
     Route: 065
     Dates: start: 201409
  6. BETAMETHASONE DIPROPIONATE. [Concomitant]
     Active Substance: BETAMETHASONE DIPROPIONATE
     Dosage: UNK

REACTIONS (3)
  - Psoriasis [Not Recovered/Not Resolved]
  - Injection site pain [Recovered/Resolved]
  - Oral herpes [Not Recovered/Not Resolved]

NARRATIVE: CASE EVENT DATE: 20140915
